FAERS Safety Report 7206942-6 (Version None)
Quarter: 2011Q1

REPORT INFORMATION
  Report Type: 
  Country: None (occurrence: None)
  Receive Date: 20110103
  Receipt Date: 20101227
  Transmission Date: 20110831
  Serious: Yes (Life-Threatening, Hospitalization, Other)
  Sender: FDA-Public Use
  Company Number: A0901825A

PATIENT
  Sex: Female
  Weight: 47 kg

DRUGS (3)
  1. FLUIR [Concomitant]
     Dosage: 1PUFF TWICE PER DAY
     Route: 055
     Dates: start: 20050101
  2. AEROLIN [Suspect]
     Indication: CHRONIC OBSTRUCTIVE PULMONARY DISEASE
     Dosage: 1PUFF TWICE PER DAY
     Route: 055
     Dates: start: 20000101
  3. THEOPHYLLINE [Concomitant]
     Dosage: 1TAB PER DAY
     Route: 048
     Dates: start: 20050101

REACTIONS (2)
  - COMA [None]
  - DYSPNOEA [None]
